FAERS Safety Report 25283356 (Version 1)
Quarter: 2025Q2

REPORT INFORMATION
  Report Type: Spontaneous
  Country: CA (occurrence: CA)
  Receive Date: 20250508
  Receipt Date: 20250508
  Transmission Date: 20250717
  Serious: Yes (Hospitalization, Other)
  Sender: PFIZER
  Company Number: CA-PFIZER INC-202500095606

PATIENT
  Age: 60 Year
  Sex: Female
  Weight: 51 kg

DRUGS (19)
  1. ADRIAMYCIN [Suspect]
     Active Substance: DOXORUBICIN HYDROCHLORIDE
     Indication: Invasive ductal breast carcinoma
     Route: 042
  2. CYTOXAN [Suspect]
     Active Substance: CYCLOPHOSPHAMIDE
     Indication: Invasive ductal breast carcinoma
     Route: 042
  3. AMLODIPINE [Concomitant]
     Active Substance: AMLODIPINE BESYLATE
  4. CALCIUM CARBONATE [Concomitant]
     Active Substance: CALCIUM CARBONATE
  5. CARBAMAZEPINE [Concomitant]
     Active Substance: CARBAMAZEPINE
  6. CHOLECALCIFEROL [Concomitant]
     Active Substance: CHOLECALCIFEROL
  7. CYANOCOBALAMIN [Concomitant]
     Active Substance: CYANOCOBALAMIN
  8. DEXAMETHASONE [Concomitant]
     Active Substance: DEXAMETHASONE
  9. FERROUS SULFATE [Concomitant]
     Active Substance: FERROUS SULFATE
  10. FILGRASTIM [Concomitant]
     Active Substance: FILGRASTIM
  11. FOLIC ACID [Concomitant]
     Active Substance: FOLIC ACID
  12. HYDROMORPHONE [Concomitant]
     Active Substance: HYDROMORPHONE
  13. LOMOTIL [Concomitant]
     Active Substance: ATROPINE SULFATE\DIPHENOXYLATE HYDROCHLORIDE
  14. NYSTATIN [Concomitant]
     Active Substance: NYSTATIN
  15. METOCLOPRAMIDE [Concomitant]
     Active Substance: METOCLOPRAMIDE
  16. ONDANSETRON [Concomitant]
     Active Substance: ONDANSETRON
  17. PYRIDOXINE [Concomitant]
     Active Substance: PYRIDOXINE
  18. ROSUVASTATIN [Concomitant]
     Active Substance: ROSUVASTATIN
  19. VENLAFAXINE HYDROCHLORIDE [Concomitant]
     Active Substance: VENLAFAXINE HYDROCHLORIDE

REACTIONS (4)
  - Febrile neutropenia [Recovering/Resolving]
  - Stomatitis [Recovering/Resolving]
  - Thrombocytopenia [Recovering/Resolving]
  - Transfusion [Recovering/Resolving]
